FAERS Safety Report 17195128 (Version 1)
Quarter: 2019Q4

REPORT INFORMATION
  Report Type: Report from Study
  Country: BR (occurrence: BR)
  Receive Date: 20191224
  Receipt Date: 20191224
  Transmission Date: 20200122
  Serious: Yes (Other)
  Sender: FDA-Public Use
  Company Number: BR-TEVA-2019-BR-1148469

PATIENT
  Age: 32 Year
  Sex: Female

DRUGS (5)
  1. COLLAGEN [Concomitant]
     Active Substance: COLLAGEN
  2. COPAXONE [Suspect]
     Active Substance: GLATIRAMER ACETATE
     Indication: MULTIPLE SCLEROSIS
     Dosage: 20 MILLIGRAM/MILLILITERS DAILY;
     Dates: start: 20191009
  3. OMEGA 3 [Concomitant]
     Active Substance: OMEGA-3 FATTY ACIDS
  4. D VITAMIN [Concomitant]
     Active Substance: VITAMIN D NOS
     Dosage: 50.000 IU A WEEK
  5. EVRA ANTICONCEPTIONAL [Concomitant]

REACTIONS (20)
  - Dizziness [Recovered/Resolved]
  - Dry throat [Recovered/Resolved]
  - Fatigue [Recovered/Resolved]
  - Micturition urgency [Recovered/Resolved]
  - Injection site reaction [Recovered/Resolved]
  - Headache [Recovered/Resolved]
  - Paraesthesia [Recovered/Resolved]
  - Hypoaesthesia [Recovered/Resolved]
  - Hyperhidrosis [Recovered/Resolved]
  - Chest discomfort [Recovered/Resolved]
  - Chills [Recovered/Resolved]
  - Product storage error [Unknown]
  - Suffocation feeling [Recovered/Resolved]
  - Paraesthesia [Recovered/Resolved]
  - Diarrhoea [Recovered/Resolved]
  - Abdominal pain [Recovered/Resolved]
  - Metamorphopsia [Recovered/Resolved]
  - Product administered at inappropriate site [Unknown]
  - Injection site erythema [Unknown]
  - Abdominal pain [Recovered/Resolved]

NARRATIVE: CASE EVENT DATE: 201911
